FAERS Safety Report 12438989 (Version 1)
Quarter: 2016Q2

REPORT INFORMATION
  Report Type: Other
  Country: GB (occurrence: GB)
  Receive Date: 20160606
  Receipt Date: 20160606
  Transmission Date: 20160815
  Serious: Yes (Other)
  Sender: FDA-Public Use
  Company Number: GB-APOTEX-2016AP008627

PATIENT
  Age: 56 Year
  Sex: Female
  Weight: 76.2 kg

DRUGS (3)
  1. PAROXETINE. [Suspect]
     Active Substance: PAROXETINE
     Indication: ANXIETY
     Dosage: 20 MG, UNK
     Route: 048
     Dates: start: 20160510, end: 20160511
  2. LANSOPRAZOLE. [Concomitant]
     Active Substance: LANSOPRAZOLE
     Indication: PRODUCT USED FOR UNKNOWN INDICATION
     Dosage: 15 MG, UNK
     Route: 065
  3. PAROXETINE. [Suspect]
     Active Substance: PAROXETINE
     Indication: DEPRESSION

REACTIONS (6)
  - Restlessness [Recovered/Resolved]
  - Dry mouth [Recovered/Resolved]
  - Tremor [Recovered/Resolved]
  - Agitation [Recovered/Resolved]
  - Vision blurred [Recovered/Resolved]
  - Palpitations [Recovered/Resolved]

NARRATIVE: CASE EVENT DATE: 20160510
